FAERS Safety Report 25706567 (Version 1)
Quarter: 2025Q3

REPORT INFORMATION
  Report Type: Spontaneous
  Country: US (occurrence: US)
  Receive Date: 20250820
  Receipt Date: 20250820
  Transmission Date: 20251020
  Serious: No
  Sender: CATALYST PHARMA
  Company Number: US-CATALYST PHARMACEUTICALS-US-CATA-25-00927

PATIENT
  Age: 7 Year
  Sex: Male

DRUGS (3)
  1. AGAMREE [Suspect]
     Active Substance: VAMOROLONE
     Indication: Duchenne muscular dystrophy
     Route: 048
     Dates: start: 202403
  2. PREDNISONE [Suspect]
     Active Substance: PREDNISONE
     Indication: Duchenne muscular dystrophy
     Route: 065
     Dates: start: 20241204, end: 2025
  3. ELEVIDYS [Suspect]
     Active Substance: DELANDISTROGENE MOXEPARVOVEC-ROKL
     Indication: Duchenne muscular dystrophy
     Route: 065
     Dates: start: 20241205, end: 20241205

REACTIONS (5)
  - Hyperphagia [Recovered/Resolved]
  - Behaviour disorder [Recovered/Resolved]
  - Weight increased [Recovering/Resolving]
  - Aggression [Recovered/Resolved]
  - Swelling face [Recovered/Resolved]

NARRATIVE: CASE EVENT DATE: 20241201
